FAERS Safety Report 6580374-6 (Version None)
Quarter: 2010Q1

REPORT INFORMATION
  Report Type: 
  Country: None (occurrence: None)
  Receive Date: 20100212
  Receipt Date: 20100201
  Transmission Date: 20100710
  Serious: Yes (Other)
  Sender: FDA-Public Use
  Company Number: PHHY2010CA04989

PATIENT
  Sex: Female

DRUGS (6)
  1. ALISKIREN ALI+ [Suspect]
     Indication: HYPERTENSION
     Dosage: 300 MG, EVERY DAY
     Route: 048
     Dates: start: 20091009, end: 20100101
  2. BETA BLOCKING AGENTS [Concomitant]
  3. HAIDOL [Concomitant]
  4. MONITAN [Concomitant]
     Dosage: 200 (UNITS ILLEGIBLE)
  5. TEGRETOL [Concomitant]
     Dosage: 400 (UNITS NOT SPECIFIED) BID
  6. ACE INHIBITOR NOS [Concomitant]

REACTIONS (3)
  - BLOOD CHOLESTEROL INCREASED [None]
  - BLOOD SODIUM DECREASED [None]
  - MICROALBUMINURIA [None]
